FAERS Safety Report 19614367 (Version 3)
Quarter: 2021Q4

REPORT INFORMATION
  Report Type: Spontaneous
  Country: PT (occurrence: PT)
  Receive Date: 20210727
  Receipt Date: 20211020
  Transmission Date: 20220303
  Serious: Yes (Life-Threatening, Other)
  Sender: FDA-Public Use
  Company Number: PT-AKCEA THERAPEUTICS-2021IS001086

PATIENT
  Age: 48 Year
  Sex: Male
  Weight: 82.18 kg

DRUGS (3)
  1. TEGSEDI [Suspect]
     Active Substance: INOTERSEN SODIUM
     Indication: Hereditary neuropathic amyloidosis
     Route: 058
     Dates: start: 20141125, end: 20210107
  2. DEVICE [Suspect]
     Active Substance: DEVICE
  3. TEGSEDI [Suspect]
     Active Substance: INOTERSEN SODIUM
     Route: 065
     Dates: start: 20141201, end: 20210113

REACTIONS (23)
  - Glomerular filtration rate decreased [Recovering/Resolving]
  - Tubulointerstitial nephritis [Unknown]
  - Iridocyclitis [Recovered/Resolved]
  - Ocular hyperaemia [Recovered/Resolved]
  - Eye pain [Recovered/Resolved]
  - Erectile dysfunction [Unknown]
  - Renal impairment [Unknown]
  - Glomerulosclerosis [Unknown]
  - Kidney fibrosis [Unknown]
  - Lymphocytic infiltration [Unknown]
  - Renal amyloidosis [Unknown]
  - Renal tubular atrophy [Unknown]
  - Chronic kidney disease [Unknown]
  - Renal disorder [Unknown]
  - Albuminuria [Unknown]
  - Urinary sediment present [Unknown]
  - Complement factor C3 decreased [Unknown]
  - Complement factor C1 decreased [Unknown]
  - Globulin urine present [Unknown]
  - Cystatin C increased [Unknown]
  - Biopsy kidney abnormal [Unknown]
  - Hyperglycaemia [Unknown]
  - Photophobia [Recovered/Resolved]

NARRATIVE: CASE EVENT DATE: 20201001
